FAERS Safety Report 4402513-5 (Version None)
Quarter: 2004Q3

REPORT INFORMATION
  Report Type: 
  Country: None (occurrence: None)
  Receive Date: 20040720
  Receipt Date: 20040715
  Transmission Date: 20050211
  Serious: Yes (Other)
  Sender: FDA-Public Use
  Company Number: GB-MERCK-0407GBR00165

PATIENT
  Age: 65 Year
  Sex: Male
  Weight: 97 kg

DRUGS (7)
  1. CLOPIDOGREL BISULFATE [Concomitant]
     Indication: MYOCARDIAL ISCHAEMIA
     Route: 048
  2. FOLIC ACID [Concomitant]
     Route: 048
  3. ISOSORBIDE MONONITRATE [Concomitant]
     Indication: MYOCARDIAL ISCHAEMIA
     Route: 048
  4. COZAAR [Suspect]
     Indication: BLOOD PRESSURE INCREASED
     Route: 048
     Dates: start: 20031201, end: 20040501
  5. COZAAR [Suspect]
     Indication: MYOCARDIAL ISCHAEMIA
     Route: 048
     Dates: start: 20031201, end: 20040501
  6. METHOTREXATE [Concomitant]
     Indication: PSORIASIS
     Route: 048
     Dates: start: 20010801
  7. NICORANDIL [Concomitant]
     Indication: MYOCARDIAL ISCHAEMIA
     Route: 048

REACTIONS (1)
  - PSORIASIS [None]
